FAERS Safety Report 17769722 (Version 2)
Quarter: 2020Q3

REPORT INFORMATION
  Report Type: Spontaneous
  Country: US (occurrence: US)
  Receive Date: 20200512
  Receipt Date: 20200716
  Transmission Date: 20201102
  Serious: No
  Sender: FDA-Public Use
  Company Number: US-PFIZER INC-2020188244

PATIENT
  Age: 89 Year
  Sex: Female
  Weight: 56.25 kg

DRUGS (1)
  1. PREMARIN [Suspect]
     Active Substance: ESTROGENS, CONJUGATED
     Indication: UTERINE PROLAPSE
     Dosage: 1 G, WEEKLY

REACTIONS (5)
  - Weight increased [Unknown]
  - Product use in unapproved indication [Unknown]
  - Expired product administered [Unknown]
  - Off label use [Unknown]
  - Memory impairment [Unknown]
